FAERS Safety Report 15663129 (Version 3)
Quarter: 2019Q1

REPORT INFORMATION
  Report Type: Spontaneous
  Country: US (occurrence: US)
  Receive Date: 20181128
  Receipt Date: 20190129
  Transmission Date: 20190417
  Serious: No
  Sender: FDA-Public Use
  Company Number: US-SA-2018SA323204

PATIENT
  Age: 31 Year
  Sex: Male

DRUGS (1)
  1. DUPIXENT [Suspect]
     Active Substance: DUPILUMAB
     Indication: DERMATITIS ATOPIC
     Dosage: 300 MG, QOW
     Route: 058
     Dates: start: 201805, end: 2018

REACTIONS (6)
  - Malaise [Unknown]
  - Swelling [Unknown]
  - Injection site swelling [Unknown]
  - Pain [Unknown]
  - Pyrexia [Unknown]
  - Unevaluable event [Unknown]
